FAERS Safety Report 5135017-5 (Version None)
Quarter: 2006Q4

REPORT INFORMATION
  Report Type: 
  Country: None (occurrence: None)
  Receive Date: 20060831
  Receipt Date: 20060602
  Transmission Date: 20070319
  Serious: No
  Sender: FDA-Public Use
  Company Number: 2006-BP-04396BP

PATIENT
  Age: 72 Year
  Sex: Female
  Weight: 122.7 kg

DRUGS (13)
  1. SPIRIVA [Suspect]
     Indication: CHRONIC OBSTRUCTIVE PULMONARY DISEASE
     Dosage: 18 MCG (18 MCG,MORNING DAILY DOSE),IH
     Route: 055
     Dates: start: 20060101
  2. SPIRIVA [Suspect]
  3. AVAPRO [Concomitant]
  4. TIAZAC [Concomitant]
  5. METFORMIN HCL [Concomitant]
  6. VITAMINS [Concomitant]
  7. GLUCOSAMINE (GLUCOSAMINE) [Concomitant]
  8. TAZTIA (DILTIAZEM HYDROCHLORIDE) [Concomitant]
  9. LASIX [Concomitant]
  10. ALLOPURINOL [Concomitant]
  11. MICRO K (POTASSIUM CHLORIDE) [Concomitant]
  12. DILTIAZEM [Concomitant]
  13. GLUCOPHAGE XR [Concomitant]

REACTIONS (2)
  - ARTHRALGIA [None]
  - BONE PAIN [None]
